FAERS Safety Report 20350713 (Version 3)
Quarter: 2022Q3

REPORT INFORMATION
  Report Type: Spontaneous
  Country: US (occurrence: US)
  Receive Date: 20220119
  Receipt Date: 20220923
  Transmission Date: 20221027
  Serious: No
  Sender: FDA-Public Use
  Company Number: US-SA-SAC20220114000311

PATIENT
  Age: 78 Year
  Sex: Female
  Weight: 62.585 kg

DRUGS (5)
  1. DUPIXENT [Suspect]
     Active Substance: DUPILUMAB
     Indication: Dermatitis atopic
     Dosage: 300 MG, QOW
     Route: 058
     Dates: start: 2021
  2. AZELASTINE [Concomitant]
     Active Substance: AZELASTINE
  3. HYDROXYZINE HYDROCHLORIDE [Concomitant]
     Active Substance: HYDROXYZINE HYDROCHLORIDE
  4. LISINOPRIL [Concomitant]
     Active Substance: LISINOPRIL
     Indication: Hypertension
  5. ANASTROZOLE [Concomitant]
     Active Substance: ANASTROZOLE

REACTIONS (9)
  - Hypertension [Unknown]
  - Visual impairment [Unknown]
  - Condition aggravated [Unknown]
  - Vision blurred [Unknown]
  - Condition aggravated [Unknown]
  - Eyelids pruritus [Unknown]
  - Eye pruritus [Unknown]
  - Condition aggravated [Unknown]
  - Eczema [Unknown]
